FAERS Safety Report 21145172 (Version 1)
Quarter: 2022Q3

REPORT INFORMATION
  Report Type: Spontaneous
  Country: JP (occurrence: JP)
  Receive Date: 20220729
  Receipt Date: 20220729
  Transmission Date: 20221027
  Serious: Yes (Other)
  Sender: FDA-Public Use
  Company Number: JP-PFIZER INC-202201002655

PATIENT
  Sex: Female

DRUGS (2)
  1. ENBREL [Suspect]
     Active Substance: ETANERCEPT
     Indication: Product used for unknown indication
     Dosage: 50 MG
     Route: 065
     Dates: start: 2016, end: 201809
  2. PROGRAF [Concomitant]
     Active Substance: TACROLIMUS
     Dosage: UNK
     Dates: start: 2016

REACTIONS (5)
  - Myelodysplastic syndrome [Unknown]
  - Anaemia [Unknown]
  - Interstitial lung disease [Unknown]
  - Herpes zoster [Recovered/Resolved]
  - Onychomycosis [Recovered/Resolved]

NARRATIVE: CASE EVENT DATE: 20190101
